FAERS Safety Report 26034394 (Version 1)
Quarter: 2025Q4

REPORT INFORMATION
  Report Type: Spontaneous
  Country: US (occurrence: US)
  Receive Date: 20251112
  Receipt Date: 20251112
  Transmission Date: 20260118
  Serious: Yes (Hospitalization, Other)
  Sender: STRIDES
  Company Number: US-STRIDES ARCOLAB LIMITED-2025SP012991

PATIENT
  Age: 40 Year
  Sex: Male

DRUGS (27)
  1. PHENOBARBITAL [Suspect]
     Active Substance: PHENOBARBITAL
     Indication: Status epilepticus
     Dosage: 32.4 MILLIGRAM, BID
     Route: 065
  2. PHENOBARBITAL [Suspect]
     Active Substance: PHENOBARBITAL
     Indication: Epilepsy
  3. MEMANTINE [Suspect]
     Active Substance: MEMANTINE
     Indication: Status epilepticus
     Dosage: 5 MILLIGRAM, BID
     Route: 048
  4. MEMANTINE [Suspect]
     Active Substance: MEMANTINE
     Indication: Epilepsy
  5. LACOSAMIDE [Suspect]
     Active Substance: LACOSAMIDE
     Indication: Status epilepticus
     Dosage: 250 MILLIGRAM, BID
     Route: 065
  6. LACOSAMIDE [Suspect]
     Active Substance: LACOSAMIDE
     Indication: Epilepsy
  7. LEVETIRACETAM [Suspect]
     Active Substance: LEVETIRACETAM
     Indication: Status epilepticus
     Dosage: 1550 MILLIGRAM, BID
     Route: 065
  8. LEVETIRACETAM [Suspect]
     Active Substance: LEVETIRACETAM
     Indication: Epilepsy
  9. PREGABALIN [Suspect]
     Active Substance: PREGABALIN
     Indication: Status epilepticus
     Dosage: 100 MILLIGRAM, TID
     Route: 065
  10. PREGABALIN [Suspect]
     Active Substance: PREGABALIN
     Indication: Epilepsy
  11. CANNABIDIOL [Suspect]
     Active Substance: CANNABIDIOL
     Indication: Status epilepticus
     Dosage: 10 MILLIGRAM/KILOGRAM
     Route: 065
  12. CANNABIDIOL [Suspect]
     Active Substance: CANNABIDIOL
     Indication: Epilepsy
  13. KETAMINE [Concomitant]
     Active Substance: KETAMINE
     Indication: Sedative therapy
     Dosage: 0.5-1.2 MG/KG
     Route: 042
  14. KETAMINE [Concomitant]
     Active Substance: KETAMINE
     Indication: Status epilepticus
  15. KETAMINE [Concomitant]
     Active Substance: KETAMINE
     Indication: Epilepsy
  16. METHYLPREDNISOLONE [Concomitant]
     Active Substance: METHYLPREDNISOLONE
     Indication: Status epilepticus
     Dosage: 1 GRAM, QD
     Route: 042
  17. METHYLPREDNISOLONE [Concomitant]
     Active Substance: METHYLPREDNISOLONE
     Indication: Epilepsy
  18. PERAMPANEL [Concomitant]
     Active Substance: PERAMPANEL
     Indication: Status epilepticus
     Dosage: 8 MILLIGRAM, QD
     Route: 065
  19. PERAMPANEL [Concomitant]
     Active Substance: PERAMPANEL
     Indication: Epilepsy
     Dosage: 8 MILLIGRAM, BID
     Route: 065
  20. DEXMEDETOMIDINE [Concomitant]
     Active Substance: DEXMEDETOMIDINE
     Indication: Sedative therapy
     Dosage: 1.4 MICROGRAM/KILOGRAM, EVERY HOUR
     Route: 065
  21. FENTANYL [Concomitant]
     Active Substance: FENTANYL
     Indication: Sedative therapy
     Dosage: 4 MICROGRAM/KILOGRAM, EVERY HOUR
     Route: 065
  22. MIDAZOLAM [Concomitant]
     Active Substance: MIDAZOLAM
     Indication: Sedative therapy
     Dosage: 1 MICROGRAM/KILOGRAM, EVERY HOUR
     Route: 065
  23. PROPOFOL [Concomitant]
     Active Substance: PROPOFOL
     Indication: Sedative therapy
     Dosage: 50 MICROGRAM/KILOGRAM, 1 MINUTES
     Route: 065
  24. THIAMINE [Concomitant]
     Active Substance: THIAMINE
     Indication: Vitamin supplementation
     Dosage: 100 MILLIGRAM
     Route: 065
  25. PYRIDOXINE [Concomitant]
     Active Substance: PYRIDOXINE
     Indication: Vitamin supplementation
     Dosage: 100 MILLIGRAM
     Route: 065
  26. CLOBAZAM [Concomitant]
     Active Substance: CLOBAZAM
     Indication: Status epilepticus
     Dosage: 20 MILLIGRAM, BID
     Route: 065
  27. CLOBAZAM [Concomitant]
     Active Substance: CLOBAZAM
     Indication: Epilepsy

REACTIONS (2)
  - Therapy partial responder [Unknown]
  - Off label use [Unknown]
